FAERS Safety Report 11879610 (Version 1)
Quarter: 2015Q4

REPORT INFORMATION
  Report Type: Report from Study
  Country: US (occurrence: US)
  Receive Date: 20151230
  Receipt Date: 20151230
  Transmission Date: 20160305
  Serious: No
  Sender: FDA-Public Use
  Company Number: US-AEGERION PHARMACEUTICAL INC.-AEGR002207

PATIENT
  Sex: Female
  Weight: 84.35 kg

DRUGS (3)
  1. MULTIVITAMIN [Suspect]
     Active Substance: VITAMINS
     Indication: PRODUCT USED FOR UNKNOWN INDICATION
  2. JUXTAPID [Suspect]
     Active Substance: LOMITAPIDE MESYLATE
     Indication: TYPE IIA HYPERLIPIDAEMIA
     Dosage: 5 MG, QD
     Route: 048
     Dates: start: 20140804
  3. JUXTAPID [Suspect]
     Active Substance: LOMITAPIDE MESYLATE
     Dosage: 5 MG, QD, FIVE TIMES PER WEEK
     Route: 048

REACTIONS (6)
  - Inappropriate schedule of drug administration [Unknown]
  - Dysgeusia [Unknown]
  - Product odour abnormal [Recovering/Resolving]
  - Product taste abnormal [Recovering/Resolving]
  - Drug interaction [Unknown]
  - Constipation [Recovering/Resolving]
